FAERS Safety Report 12521136 (Version 1)
Quarter: 2016Q3

REPORT INFORMATION
  Report Type: Spontaneous
  Country: US (occurrence: US)
  Receive Date: 20160701
  Receipt Date: 20160701
  Transmission Date: 20161109
  Serious: Yes (Hospitalization)
  Sender: FDA-Public Use
  Company Number: US-VERTEX PHARMACEUTICALS-2016-004098

PATIENT
  Sex: Female

DRUGS (22)
  1. SINGULAIR [Concomitant]
     Active Substance: MONTELUKAST SODIUM
     Dosage: 10 MG, QD
  2. EPIPEN [Concomitant]
     Active Substance: EPINEPHRINE
  3. VITAMIN A [Concomitant]
     Active Substance: VITAMIN A
  4. IRON [Concomitant]
     Active Substance: IRON
  5. LACTULOSE. [Concomitant]
     Active Substance: LACTULOSE
  6. NOVOLOG [Concomitant]
     Active Substance: INSULIN ASPART
  7. OMEPRAZOLE. [Concomitant]
     Active Substance: OMEPRAZOLE
  8. VITAMIN D3 [Concomitant]
     Active Substance: CHOLECALCIFEROL
  9. ZYVOX [Concomitant]
     Active Substance: LINEZOLID
  10. GABAPENTIN. [Concomitant]
     Active Substance: GABAPENTIN
  11. CALCIUM [Concomitant]
     Active Substance: CALCIUM
  12. FLONASE [Concomitant]
     Active Substance: FLUTICASONE PROPIONATE
  13. ADVAIR HFA [Concomitant]
     Active Substance: FLUTICASONE PROPIONATE\SALMETEROL XINAFOATE
  14. ALBUTEROL. [Concomitant]
     Active Substance: ALBUTEROL
  15. KALYDECO [Suspect]
     Active Substance: IVACAFTOR
     Indication: CYSTIC FIBROSIS
     Dosage: 1 TABLET (150 MG), BID
     Route: 048
     Dates: start: 20160307
  16. PULMOZYME [Concomitant]
     Active Substance: DORNASE ALFA
     Dosage: 2.5 MG, QD
  17. AMBIEN [Concomitant]
     Active Substance: ZOLPIDEM TARTRATE
     Dosage: 10 MG, AT BEDTIME
  18. ZYRTEC [Concomitant]
     Active Substance: CETIRIZINE HYDROCHLORIDE
  19. PANCREASE MT [Concomitant]
     Active Substance: PANCRELIPASE
  20. MEGACE [Concomitant]
     Active Substance: MEGESTROL ACETATE
  21. MIRALAX [Concomitant]
     Active Substance: POLYETHYLENE GLYCOL 3350
  22. TIZANIDINE. [Concomitant]
     Active Substance: TIZANIDINE

REACTIONS (1)
  - Hospitalisation [Unknown]
